FAERS Safety Report 9435496 (Version 3)
Quarter: 2014Q1

REPORT INFORMATION
  Report Type: Spontaneous
  Country: US (occurrence: US)
  Receive Date: 20130801
  Receipt Date: 20140207
  Transmission Date: 20141002
  Serious: Yes (Hospitalization)
  Sender: FDA-Public Use
  Company Number: US-B.I. PHARMACEUTICALS,INC./RIDGEFIELD-2013-BI-22588BP

PATIENT
  Sex: Male
  Weight: 105.23 kg

DRUGS (8)
  1. PRADAXA [Suspect]
     Indication: ATRIAL FIBRILLATION
     Dosage: 300 MG
     Dates: start: 20120505, end: 20121228
  2. PROAIR [Concomitant]
  3. SPIRIVA [Concomitant]
  4. CARDIZEM [Concomitant]
     Dosage: 120 MG
  5. TOPROL XL [Concomitant]
     Dosage: 100 MG
     Dates: start: 2006
  6. PRAVACHOL [Concomitant]
     Dosage: 20 MG
     Dates: start: 2010
  7. EFFEXOR XR [Concomitant]
     Dosage: 150 MG
     Dates: start: 2006
  8. HCTZ [Concomitant]
     Dates: start: 2010

REACTIONS (4)
  - Haematuria [Unknown]
  - Haemorrhagic anaemia [Unknown]
  - Renal haemorrhage [Unknown]
  - Urinary bladder haemorrhage [Unknown]
